FAERS Safety Report 6345276-9 (Version None)
Quarter: 2009Q3

REPORT INFORMATION
  Report Type: 
  Country: None (occurrence: None)
  Receive Date: 20090909
  Receipt Date: 20090903
  Transmission Date: 20100115
  Serious: Yes (Death)
  Sender: FDA-Public Use
  Company Number: PHHY2009JP38195

PATIENT
  Sex: Female
  Weight: 35 kg

DRUGS (13)
  1. ICL670A ICL+DISTAB [Suspect]
     Indication: IRON OVERLOAD
     Dosage: 525 MG DAILY
     Route: 048
     Dates: start: 20080707, end: 20080810
  2. ICL670A ICL+DISTAB [Suspect]
     Dosage: 375 MG DAILY
     Route: 048
     Dates: start: 20090119
  3. NEORAL [Suspect]
     Indication: APLASIA PURE RED CELL
     Dosage: 50 MG DAILY
     Route: 048
     Dates: start: 20080707
  4. PREDNISOLONE [Concomitant]
     Indication: APLASIA PURE RED CELL
     Dosage: 5 MG, UNK
     Route: 048
     Dates: start: 20080707
  5. PREDNISOLONE [Concomitant]
     Dosage: 2.5 MG, UNK
     Route: 048
     Dates: end: 20090614
  6. FOLIAMIN [Concomitant]
     Indication: APLASIA PURE RED CELL
     Dosage: 20 MG, UNK
     Route: 048
     Dates: start: 20080707, end: 20090614
  7. MAGNESIUM OXIDE [Concomitant]
     Dosage: 1 G, UNK
     Route: 048
     Dates: start: 20080707, end: 20090131
  8. MARZULENE S [Concomitant]
     Dosage: 1.34 G, UNK
     Route: 048
     Dates: start: 20080707, end: 20090614
  9. GASTER D [Concomitant]
     Dosage: 10 MG, UNK
     Route: 048
     Dates: start: 20080707, end: 20090614
  10. KALIMATE [Concomitant]
     Dosage: 10 G, UNK
     Route: 048
     Dates: start: 20080707, end: 20090131
  11. SUNRYTHM [Concomitant]
     Dosage: 100 MG, UNK
     Route: 048
     Dates: start: 20080707, end: 20090114
  12. DIFLUCAN [Concomitant]
     Dosage: 100 MG, UNK
     Route: 048
     Dates: start: 20080707, end: 20090614
  13. BLOOD CELLS, RED [Concomitant]
     Dosage: 2 UNITS EVERY TWO WEEKS
     Dates: start: 20060920, end: 20090608

REACTIONS (2)
  - DEATH [None]
  - RENAL DISORDER [None]
